FAERS Safety Report 9598608 (Version 1)
Quarter: 2013Q4

REPORT INFORMATION
  Report Type: Spontaneous
  Country: US (occurrence: US)
  Receive Date: 20131004
  Receipt Date: 20131004
  Transmission Date: 20140711
  Serious: No
  Sender: FDA-Public Use
  Company Number: US-AMGEN-USASP2013024937

PATIENT
  Age: 45 Year
  Sex: Male
  Weight: 113 kg

DRUGS (5)
  1. ENBREL [Suspect]
     Indication: PRODUCT USED FOR UNKNOWN INDICATION
     Dosage: 50 MG, 2 TIMES/WK
     Route: 058
  2. FISH OIL [Concomitant]
     Dosage: UNK
     Route: 048
  3. VITAMIN D3 [Concomitant]
     Dosage: 2000 UNIT, UNK
     Route: 048
  4. CINNAMON                           /01647501/ [Concomitant]
     Dosage: 500 MG, UNK
     Route: 048
  5. MAGNESIUM [Concomitant]
     Dosage: 300 MG, UNK
     Route: 048

REACTIONS (2)
  - Injection site swelling [Unknown]
  - Injection site erythema [Unknown]
